FAERS Safety Report 7837486-6 (Version None)
Quarter: 2011Q4

REPORT INFORMATION
  Report Type: 
  Country: None (occurrence: None)
  Receive Date: 20111024
  Receipt Date: 20110303
  Transmission Date: 20120403
  Serious: No
  Sender: FDA-Public Use
  Company Number: US-ABBOTT-10P-163-0687086-00

PATIENT
  Sex: Female

DRUGS (6)
  1. OVIDREL [Concomitant]
     Indication: PRODUCT USED FOR UNKNOWN INDICATION
  2. GONAL-F [Concomitant]
  3. GONAL-F [Concomitant]
     Indication: PRODUCT USED FOR UNKNOWN INDICATION
  4. BIRTH CONTROL PILLS [Concomitant]
     Indication: PRODUCT USED FOR UNKNOWN INDICATION
     Dates: start: 20101017
  5. CLOMID [Concomitant]
     Indication: PRODUCT USED FOR UNKNOWN INDICATION
  6. LUPRON DEPOT [Suspect]
     Indication: PRODUCT USED FOR UNKNOWN INDICATION
     Dates: start: 20101109

REACTIONS (2)
  - NAUSEA [None]
  - FATIGUE [None]
